FAERS Safety Report 8621603-4 (Version None)
Quarter: 2012Q3

REPORT INFORMATION
  Report Type: 
  Country: None (occurrence: None)
  Receive Date: 20120820
  Receipt Date: 20120820
  Transmission Date: 20120928
  Serious: Yes (Other)
  Sender: FDA-Public Use
  Company Number: None

PATIENT
  Age: 76 Year
  Sex: Female

DRUGS (1)
  1. XELODA 500 MG 500 MG ROCHE/GENENTECH [Suspect]
     Dosage: 1000 MG, BIX X 14 DAYS, PO
     Route: 048
     Dates: start: 20120731, end: 20120812

REACTIONS (4)
  - HEART RATE INCREASED [None]
  - FATIGUE [None]
  - ABDOMINAL PAIN [None]
  - WHITE BLOOD CELL COUNT DECREASED [None]
